FAERS Safety Report 8821260 (Version 1)
Quarter: 2012Q4

REPORT INFORMATION
  Report Type: 
  Country: US (occurrence: US)
  Receive Date: 20121002
  Receipt Date: 20121002
  Transmission Date: 20130627
  Serious: No
  Sender: FDA-Public Use
  Company Number: US-ASTRAZENECA-2012SE74660

PATIENT
  Age: 66 Year
  Sex: Male

DRUGS (2)
  1. NEXIUM [Suspect]
     Route: 048
  2. PROTONIX [Suspect]
     Route: 065

REACTIONS (5)
  - Gastrooesophageal reflux disease [Unknown]
  - Adverse event [Unknown]
  - Aspiration [Unknown]
  - Sleep disorder due to general medical condition, insomnia type [Unknown]
  - Diarrhoea [Unknown]
